FAERS Safety Report 17565455 (Version 1)
Quarter: 2020Q1

REPORT INFORMATION
  Report Type: Spontaneous
  Country: US (occurrence: US)
  Receive Date: 20200313
  Receipt Date: 20200313
  Transmission Date: 20200409
  Serious: Yes (Life-Threatening, Hospitalization, Disabling)
  Sender: FDA-Public Use
  Company Number: None

PATIENT

DRUGS (12)
  1. FLUTICASONE. [Concomitant]
     Active Substance: FLUTICASONE
  2. ZOLOFT [Concomitant]
     Active Substance: SERTRALINE HYDROCHLORIDE
  3. TETRACYCLINE [Concomitant]
     Active Substance: TETRACYCLINE
  4. DOXYCYCLINE. [Concomitant]
     Active Substance: DOXYCYCLINE
  5. NORVASC [Suspect]
     Active Substance: AMLODIPINE BESYLATE
  6. ZANTAC [Concomitant]
     Active Substance: RANITIDINE HYDROCHLORIDE
  7. OFLOXACIN. [Concomitant]
     Active Substance: OFLOXACIN
  8. METRONIDAZOLE. [Concomitant]
     Active Substance: METRONIDAZOLE
  9. RANITIDINE. [Suspect]
     Active Substance: RANITIDINE
  10. VIAGRA [Concomitant]
     Active Substance: SILDENAFIL CITRATE
  11. VITAMIN D2 [Concomitant]
     Active Substance: ERGOCALCIFEROL
  12. CIALIS [Concomitant]
     Active Substance: TADALAFIL

REACTIONS (2)
  - Gastrointestinal disorder [None]
  - Skin cancer [None]

NARRATIVE: CASE EVENT DATE: 20130325
